FAERS Safety Report 6590620-0 (Version None)
Quarter: 2010Q1

REPORT INFORMATION
  Report Type: 
  Country: None (occurrence: None)
  Receive Date: 20100219
  Receipt Date: 20100216
  Transmission Date: 20100710
  Serious: Yes (Disabling)
  Sender: FDA-Public Use
  Company Number: A0842677A

PATIENT
  Sex: Male

DRUGS (1)
  1. EPZICOM [Suspect]
     Indication: HIV INFECTION
     Route: 048

REACTIONS (6)
  - ADVERSE EVENT [None]
  - CHRONIC FATIGUE SYNDROME [None]
  - DISABILITY [None]
  - FAT REDISTRIBUTION [None]
  - NERVE INJURY [None]
  - TERMINAL STATE [None]
